FAERS Safety Report 18958778 (Version 1)
Quarter: 2021Q1

REPORT INFORMATION
  Report Type: Spontaneous
  Country: US (occurrence: US)
  Receive Date: 20210302
  Receipt Date: 20210302
  Transmission Date: 20210420
  Serious: Yes (Other)
  Sender: FDA-Public Use
  Company Number: US-GLAXOSMITHKLINE-US2021GSK052074

PATIENT
  Sex: Male

DRUGS (7)
  1. RANITIDINE CAPSULE [Suspect]
     Active Substance: RANITIDINE
     Dosage: QD, BOTH
     Route: 065
     Dates: start: 201003, end: 201907
  2. ZANTAC [Suspect]
     Active Substance: RANITIDINE HYDROCHLORIDE
     Dosage: QD, BOTH
     Route: 065
     Dates: start: 201003, end: 201907
  3. RANITIDINE HYDROCHLORIDE. [Suspect]
     Active Substance: RANITIDINE HYDROCHLORIDE
     Dosage: QD, BOTH
     Route: 065
     Dates: start: 201003, end: 201907
  4. ZANTAC [Suspect]
     Active Substance: RANITIDINE HYDROCHLORIDE
     Dosage: QD, BOTH
     Route: 065
     Dates: start: 201003, end: 201907
  5. ZANTAC [Suspect]
     Active Substance: RANITIDINE HYDROCHLORIDE
     Dosage: QD, BOTH
     Route: 065
     Dates: start: 201003, end: 201907
  6. RANITIDINE HYDROCHLORIDE. [Suspect]
     Active Substance: RANITIDINE HYDROCHLORIDE
     Dosage: QD, BOTH
     Route: 065
     Dates: start: 201003, end: 201907
  7. RANITIDINE TABLETS [Suspect]
     Active Substance: RANITIDINE HYDROCHLORIDE
     Dosage: UNK, QD BOTH
     Route: 065
     Dates: start: 201003, end: 201907

REACTIONS (1)
  - Colon cancer [Unknown]
